FAERS Safety Report 14259632 (Version 1)
Quarter: 2017Q4

REPORT INFORMATION
  Report Type: Spontaneous
  Country: CN (occurrence: CN)
  Receive Date: 20171207
  Receipt Date: 20171207
  Transmission Date: 20180321
  Serious: Yes (Other)
  Sender: FDA-Public Use
  Company Number: CN-EISAI MEDICAL RESEARCH-EC-2017-033630

PATIENT
  Age: 63 Year
  Sex: Female
  Weight: 43 kg

DRUGS (4)
  1. COLLOIDAL BISMUTH PECTIN [Suspect]
     Active Substance: BISMUTH
     Indication: HELICOBACTER INFECTION
     Route: 048
     Dates: start: 20170921, end: 20170921
  2. CLARITHROMYCIN. [Suspect]
     Active Substance: CLARITHROMYCIN
     Indication: HELICOBACTER INFECTION
     Route: 048
     Dates: start: 20170921, end: 20170921
  3. AMOXICILLIN. [Suspect]
     Active Substance: AMOXICILLIN
     Indication: HELICOBACTER INFECTION
     Route: 048
     Dates: start: 20170921, end: 20170921
  4. PARIET [Suspect]
     Active Substance: RABEPRAZOLE SODIUM
     Indication: HELICOBACTER INFECTION
     Route: 048
     Dates: start: 20170921, end: 20170921

REACTIONS (1)
  - Anaphylactic shock [Recovered/Resolved]

NARRATIVE: CASE EVENT DATE: 20170921
